FAERS Safety Report 5300318-4 (Version None)
Quarter: 2007Q2

REPORT INFORMATION
  Report Type: 
  Country: None (occurrence: None)
  Receive Date: 20070418
  Receipt Date: 20070405
  Transmission Date: 20071010
  Serious: Yes (Other)
  Sender: FDA-Public Use
  Company Number: PHNU2007SI01389

PATIENT
  Sex: Male
  Weight: 100 kg

DRUGS (3)
  1. CLOZAPINE [Suspect]
     Dosage: 50-50-100
     Route: 048
     Dates: start: 20010801
  2. LORSILAN [Concomitant]
  3. AKINETON [Concomitant]

REACTIONS (1)
  - ERECTILE DYSFUNCTION [None]
